FAERS Safety Report 4683830-0 (Version None)
Quarter: 2005Q2

REPORT INFORMATION
  Report Type: 
  Country: None (occurrence: None)
  Receive Date: 20050606
  Receipt Date: 20050606
  Transmission Date: 20051028
  Serious: Yes (Hospitalization, Other)
  Sender: FDA-Public Use
  Company Number: None

PATIENT
  Age: 59 Year

DRUGS (11)
  1. DIGOXIN [Suspect]
     Indication: ATRIAL FIBRILLATION
  2. DIGOXIN [Suspect]
     Indication: CARDIOMYOPATHY
  3. COUMADIN [Suspect]
  4. CORDARONE [Concomitant]
  5. COREG [Concomitant]
  6. COZAAR [Concomitant]
  7. ZAROXYN [Concomitant]
  8. DEMADEX [Concomitant]
  9. ALDACTONE [Concomitant]
  10. SENOKET [Concomitant]
  11. ZANTAC 150 [Concomitant]

REACTIONS (3)
  - ASTHENIA [None]
  - DEHYDRATION [None]
  - INTERNATIONAL NORMALISED RATIO ABNORMAL [None]
